FAERS Safety Report 25276721 (Version 9)
Quarter: 2025Q3

REPORT INFORMATION
  Report Type: Spontaneous
  Country: JP (occurrence: JP)
  Receive Date: 20250507
  Receipt Date: 20250905
  Transmission Date: 20251020
  Serious: Yes (Death, Hospitalization, Other)
  Sender: RIGEL PHARMACEUTICALS
  Company Number: JP-RIGEL Pharmaceuticals, INC-20250500007

PATIENT
  Age: 8 Decade
  Sex: Female

DRUGS (9)
  1. TAVALISSE [Suspect]
     Active Substance: FOSTAMATINIB
     Indication: Immune thrombocytopenia
     Dosage: 100 MG, BID
     Route: 048
     Dates: start: 20250120
  2. TAVALISSE [Suspect]
     Active Substance: FOSTAMATINIB
     Dosage: 100 MG, BID
     Route: 048
     Dates: start: 20250307
  3. TAVALISSE [Suspect]
     Active Substance: FOSTAMATINIB
     Dosage: 200 MG, QD
     Route: 048
     Dates: start: 20250514, end: 202505
  4. TAVALISSE [Suspect]
     Active Substance: FOSTAMATINIB
     Dosage: 100 MG, BID
     Route: 048
  5. TAVALISSE [Suspect]
     Active Substance: FOSTAMATINIB
     Dosage: 250 MG, QD
     Route: 048
  6. TAVALISSE [Suspect]
     Active Substance: FOSTAMATINIB
     Dosage: 150 MG, BID
     Route: 048
     Dates: start: 20250421, end: 20250513
  7. TAVALISSE [Suspect]
     Active Substance: FOSTAMATINIB
     Dosage: 150 MG, BID
     Route: 048
     Dates: start: 20250530
  8. CYCLOSPORINE [Concomitant]
     Active Substance: CYCLOSPORINE
     Indication: Immune thrombocytopenia
     Route: 065
  9. ROXADUSTAT [Concomitant]
     Active Substance: ROXADUSTAT
     Indication: Nephrogenic anaemia

REACTIONS (5)
  - Adrenal insufficiency [Fatal]
  - Platelet count decreased [Recovered/Resolved]
  - Atypical haemolytic uraemic syndrome [Unknown]
  - Diarrhoea [Recovering/Resolving]
  - Taste disorder [Not Recovered/Not Resolved]

NARRATIVE: CASE EVENT DATE: 20250421
